FAERS Safety Report 26078137 (Version 1)
Quarter: 2025Q4

REPORT INFORMATION
  Report Type: Other
  Country: EU (occurrence: EU)
  Receive Date: 20251122
  Receipt Date: 20251122
  Transmission Date: 20260117
  Serious: Yes (Hospitalization)
  Sender: ZYDUS PHARM
  Company Number: None

PATIENT

DRUGS (1)
  1. ACETAMINOPHEN [Suspect]
     Active Substance: ACETAMINOPHEN
     Indication: Poisoning deliberate
     Dosage: 4 GRAM, 1 TOTAL
     Route: 048
     Dates: start: 20250723, end: 20250723

REACTIONS (3)
  - Depressed level of consciousness [Recovered/Resolved]
  - Drug level increased [Recovered/Resolved]
  - Intentional overdose [Recovered/Resolved]

NARRATIVE: CASE EVENT DATE: 20250723
